FAERS Safety Report 14994324 (Version 1)
Quarter: 2018Q2

REPORT INFORMATION
  Report Type: Spontaneous
  Country: US (occurrence: US)
  Receive Date: 20180611
  Receipt Date: 20180611
  Transmission Date: 20180711
  Serious: No
  Sender: FDA-Public Use
  Company Number: US-LUPIN PHARMACEUTICALS INC.-2018-03379

PATIENT
  Age: 88 Year
  Sex: Male
  Weight: 61.22 kg

DRUGS (1)
  1. AZITHROMYCIN TABLETS USP, 250 MG [Suspect]
     Active Substance: AZITHROMYCIN ANHYDROUS
     Indication: PYREXIA
     Dosage: 500 MGX1D, 250 MGX4D (INSTRUCTIONS TO TAKE 2 ON DAY 1, THEN 1 TAB ON DAYS 2-5)
     Route: 048
     Dates: start: 20180419, end: 20180420

REACTIONS (1)
  - Diarrhoea [Recovered/Resolved]

NARRATIVE: CASE EVENT DATE: 20180419
